FAERS Safety Report 8955527 (Version 1)
Quarter: 2012Q4

REPORT INFORMATION
  Report Type: Spontaneous
  Country: US (occurrence: None)
  Receive Date: 20121205
  Receipt Date: 20121205
  Transmission Date: 20130627
  Serious: No
  Sender: FDA-Public Use
  Company Number: None

PATIENT

DRUGS (2)
  1. FUROSEMIDE [Suspect]
     Dosage: oral   40 mg
     Route: 048
  2. FUROSEMIDE [Suspect]
     Dosage: oral  20 mg
     Route: 048

REACTIONS (2)
  - Intercepted drug dispensing error [None]
  - Intercepted drug dispensing error [None]
